FAERS Safety Report 5629382-X (Version None)
Quarter: 2008Q1

REPORT INFORMATION
  Report Type: 
  Country: None (occurrence: None)
  Receive Date: 20080218
  Receipt Date: 20080208
  Transmission Date: 20080703
  Serious: Yes (Disabling)
  Sender: FDA-Public Use
  Company Number: B0505862A

PATIENT
  Age: 52 Year
  Sex: Female

DRUGS (12)
  1. SERETIDE [Suspect]
     Indication: ASTHMA
     Dosage: 250MCG TWICE PER DAY
     Route: 055
     Dates: start: 20071110, end: 20080204
  2. CLARITHROMYCIN [Concomitant]
     Indication: BRONCHITIS
     Dosage: 400MG PER DAY
     Route: 048
     Dates: start: 20071110
  3. THEO-DUR [Concomitant]
     Indication: ASTHMA
     Dosage: 300MG PER DAY
     Route: 048
     Dates: start: 20071110
  4. PREDONINE [Concomitant]
     Indication: ASTHMA
     Dosage: 10MG PER DAY
     Route: 048
     Dates: start: 20071110
  5. ZESULAN [Concomitant]
     Indication: ASTHMA
     Dosage: 6MG PER DAY
     Route: 048
     Dates: start: 20071110
  6. SOLITA-T NO 3 [Concomitant]
     Indication: ASTHMA
     Route: 048
     Dates: start: 20071110
  7. PREDONINE [Concomitant]
     Route: 048
     Dates: start: 20071110
  8. NEOPHYLLIN INJECTION [Concomitant]
     Indication: ASTHMA
     Dates: start: 20071110
  9. VENETLIN [Concomitant]
     Indication: ASTHMA
     Route: 055
     Dates: start: 20071110
  10. UNKNOWN DRUG [Concomitant]
     Indication: ASTHMA
     Route: 065
     Dates: start: 20071110
  11. MUCOSTA [Concomitant]
     Indication: GASTRITIS
     Dosage: 200MG PER DAY
     Route: 048
  12. MEPTIN [Concomitant]
     Route: 055
     Dates: start: 20071214

REACTIONS (10)
  - CONDITION AGGRAVATED [None]
  - DYSPHONIA [None]
  - GLOSSITIS [None]
  - GLOSSODYNIA [None]
  - PAIN [None]
  - TONGUE BLISTERING [None]
  - TONGUE DISORDER [None]
  - TONGUE EXFOLIATION [None]
  - TONGUE HAEMORRHAGE [None]
  - TONGUE INJURY [None]
